FAERS Safety Report 8679279 (Version 2)
Quarter: 2013Q1

REPORT INFORMATION
  Report Type: Spontaneous
  Country: BR (occurrence: BR)
  Receive Date: 20120724
  Receipt Date: 20130128
  Transmission Date: 20140127
  Serious: Yes (Other)
  Sender: FDA-Public Use
  Company Number: PHHY2012BR062158

PATIENT
  Age: 71 Year
  Sex: Male

DRUGS (6)
  1. CODATEN [Suspect]
     Indication: ARTHRITIS
     Dosage: UNK UKN, UNK
  2. ENALAPRIL [Concomitant]
     Indication: INFARCTION
     Dosage: 5 MG, BID
  3. PROPANOLOL [Concomitant]
     Indication: INFARCTION
     Dosage: HALF A TABLET OR 40MG, 3 TIMES A DAY
  4. NAPROXEN [Concomitant]
     Indication: RHEUMATOID ARTHRITIS
     Dosage: 1 DF, QD
  5. PREDNISOLONE [Concomitant]
     Indication: RHEUMATOID ARTHRITIS
     Dosage: 1 DF, QD
  6. HARPAGOPHYTUM PROCUMBENS [Concomitant]
     Indication: ARTHROPATHY
     Dosage: 2 DF, QD

REACTIONS (7)
  - Bone fragmentation [Unknown]
  - Arthropathy [Unknown]
  - Arthralgia [Unknown]
  - Pain in extremity [Unknown]
  - Pain [Unknown]
  - Myalgia [Unknown]
  - Back pain [Unknown]
